FAERS Safety Report 22212225 (Version 4)
Quarter: 2023Q2

REPORT INFORMATION
  Report Type: Spontaneous
  Country: FR (occurrence: FR)
  Receive Date: 20230414
  Receipt Date: 20230601
  Transmission Date: 20230721
  Serious: No
  Sender: FDA-Public Use
  Company Number: FR-JNJFOC-20230401903

PATIENT
  Age: 84 Year
  Sex: Female
  Weight: 157 kg

DRUGS (1)
  1. SIMPONI [Suspect]
     Active Substance: GOLIMUMAB
     Indication: Rheumatoid arthritis
     Dosage: STRENGTH:- 50.00 MG / 0.50 ML
     Route: 058

REACTIONS (4)
  - Device issue [Unknown]
  - Drug ineffective [Unknown]
  - Pain [Unknown]
  - Inappropriate schedule of product administration [Unknown]

NARRATIVE: CASE EVENT DATE: 20230328
